FAERS Safety Report 6386590-0 (Version None)
Quarter: 2009Q4

REPORT INFORMATION
  Report Type: 
  Country: None (occurrence: None)
  Receive Date: 20091002
  Receipt Date: 20090310
  Transmission Date: 20100525
  Serious: Yes (Other)
  Sender: FDA-Public Use
  Company Number: US-ASTRAZENECA-2009UW06410

PATIENT
  Age: 69 Year
  Sex: Female

DRUGS (5)
  1. ARIMIDEX [Suspect]
     Indication: BREAST CANCER FEMALE
     Route: 048
     Dates: start: 20060101
  2. NEXIUM [Concomitant]
     Route: 048
  3. CLONIDINE [Concomitant]
  4. BENICAR [Concomitant]
  5. LASIX [Concomitant]

REACTIONS (1)
  - ARTHRALGIA [None]
